FAERS Safety Report 21510603 (Version 2)
Quarter: 2022Q4

REPORT INFORMATION
  Report Type: Spontaneous
  Country: US (occurrence: US)
  Receive Date: 20221026
  Receipt Date: 20221109
  Transmission Date: 20230113
  Serious: Yes (Other)
  Sender: FDA-Public Use
  Company Number: US-TEVA-2022-US-2818675

PATIENT
  Age: 6 Decade
  Sex: Female

DRUGS (2)
  1. PREDNISONE [Suspect]
     Active Substance: PREDNISONE
     Indication: Glomerulonephritis minimal lesion
     Dosage: COURSE COMPLETED
     Route: 065
  2. PREDNISONE [Suspect]
     Active Substance: PREDNISONE
     Dosage: TAPERED OFF OVER 3 MONTHS
     Route: 065

REACTIONS (3)
  - Cushingoid [Unknown]
  - Blister [Unknown]
  - Rebound effect [Unknown]

NARRATIVE: CASE EVENT DATE: 20181001
